FAERS Safety Report 16089013 (Version 3)
Quarter: 2019Q2

REPORT INFORMATION
  Report Type: Spontaneous
  Country: US (occurrence: US)
  Receive Date: 20190319
  Receipt Date: 20190514
  Transmission Date: 20190711
  Serious: No
  Sender: FDA-Public Use
  Company Number: US-PFIZER INC-2019109701

PATIENT
  Age: 64 Year
  Sex: Male
  Weight: 68.4 kg

DRUGS (3)
  1. LYRICA [Suspect]
     Active Substance: PREGABALIN
     Dosage: 50 MG, 3X/DAY (DISSOLVES IN HIS MOUTH IF HE HAS THEM IN THERE TOO LONG)
     Route: 048
  2. LYRICA [Suspect]
     Active Substance: PREGABALIN
     Dosage: 200 MG, 2X/DAY
     Route: 048
     Dates: start: 20190315
  3. LYRICA [Suspect]
     Active Substance: PREGABALIN
     Indication: PAIN IN EXTREMITY
     Dosage: 200 MG, UNK

REACTIONS (3)
  - Off label use [Unknown]
  - Therapeutic product effect decreased [Unknown]
  - Product use issue [Unknown]
